FAERS Safety Report 10149470 (Version 2)
Quarter: 2014Q2

REPORT INFORMATION
  Report Type: Spontaneous
  Country: US (occurrence: None)
  Receive Date: 20140430
  Receipt Date: 20140623
  Transmission Date: 20141212
  Serious: Yes (Hospitalization)
  Sender: FDA-Public Use
  Company Number: US-000919

PATIENT
  Age: 53 Year
  Sex: Male

DRUGS (13)
  1. GATTEX [Suspect]
     Indication: SHORT-BOWEL SYNDROME
     Dosage: 0.32 ML QD, STREN/VOLUM: 0.32ML/FREQU: ONCE A DAY SUBCUTANEOUS)
     Route: 058
     Dates: start: 20130709
  2. HUMIRA [Concomitant]
  3. PROGRAFT [Concomitant]
  4. IRON [Concomitant]
  5. CITRACAL [Concomitant]
  6. VITAMIN D NOS [Concomitant]
  7. CELLCEPT [Concomitant]
  8. ENTOCORT EC [Concomitant]
  9. LACTATED RINGERS [Concomitant]
  10. VITAMIN B12 [Concomitant]
  11. MULTIVITAMINS [Concomitant]
  12. ACYCLOVIR [Concomitant]
  13. SOLUTIONS FOR PARENTERAL NUTRITION [Concomitant]

REACTIONS (3)
  - Injection site urticaria [None]
  - Dysgeusia [None]
  - Flatulence [None]
